FAERS Safety Report 8610332-9 (Version None)
Quarter: 2012Q3

REPORT INFORMATION
  Report Type: 
  Country: None (occurrence: None)
  Receive Date: 20120822
  Receipt Date: 20120816
  Transmission Date: 20120928
  Serious: Yes (Other)
  Sender: FDA-Public Use
  Company Number: PHHY2012CA041600

PATIENT
  Sex: Male

DRUGS (5)
  1. EXJADE [Suspect]
     Dosage: 2500 MG, UNK
     Route: 048
     Dates: end: 20120701
  2. EXJADE [Suspect]
     Indication: MYELODYSPLASTIC SYNDROME
     Dosage: 1000 MG, UNK
     Route: 048
     Dates: start: 20120101
  3. FLOMAX [Concomitant]
     Dosage: 10 MG, QD
     Route: 048
  4. METAMUCIL-2 [Concomitant]
  5. ALTACE [Concomitant]
     Dosage: 5 MG, QD
     Route: 048

REACTIONS (9)
  - DIARRHOEA [None]
  - DIZZINESS [None]
  - NAUSEA [None]
  - CHROMATURIA [None]
  - ASTHENIA [None]
  - ABDOMINAL DISCOMFORT [None]
  - DECREASED APPETITE [None]
  - MALAISE [None]
  - LIVER DISORDER [None]
